FAERS Safety Report 26010602 (Version 1)
Quarter: 2025Q4

REPORT INFORMATION
  Report Type: Spontaneous
  Country: US (occurrence: US)
  Receive Date: 20251107
  Receipt Date: 20251107
  Transmission Date: 20260118
  Serious: No
  Sender: RANBAXY
  Company Number: US-SUN PHARMACEUTICAL INDUSTRIES LTD-2025R1-519565

PATIENT
  Sex: Male

DRUGS (1)
  1. ALCLOMETASONE [Suspect]
     Active Substance: ALCLOMETASONE
     Indication: Rash
     Dosage: UNK
     Route: 061

REACTIONS (1)
  - Product administered at inappropriate site [Unknown]
